FAERS Safety Report 12595403 (Version 1)
Quarter: 2016Q3

REPORT INFORMATION
  Report Type: Spontaneous
  Country: US (occurrence: US)
  Receive Date: 20160726
  Receipt Date: 20160726
  Transmission Date: 20161109
  Serious: No
  Sender: FDA-Public Use
  Company Number: US-UNITED THERAPEUTICS-UNT-2016-005375

PATIENT
  Age: 63 Year
  Sex: Female
  Weight: 88.44 kg

DRUGS (7)
  1. TYVASO [Suspect]
     Active Substance: TREPROSTINIL
     Dosage: 18-90 MICROGRAMS,QID
  2. TYVASO [Suspect]
     Active Substance: TREPROSTINIL
     Dosage: 54-90 MICROGRAMS, QID
  3. TYVASO [Suspect]
     Active Substance: TREPROSTINIL
     Indication: PULMONARY HYPERTENSION
     Dosage: 108 ?G, QID
     Dates: start: 20130207
  4. TRACLEER [Concomitant]
     Active Substance: BOSENTAN
     Indication: PRODUCT USED FOR UNKNOWN INDICATION
  5. REVATIO [Concomitant]
     Active Substance: SILDENAFIL CITRATE
     Indication: PRODUCT USED FOR UNKNOWN INDICATION
  6. PROCARDIA [Concomitant]
     Active Substance: NIFEDIPINE
     Indication: PRODUCT USED FOR UNKNOWN INDICATION
  7. WARFARIN [Concomitant]
     Active Substance: WARFARIN
     Indication: PRODUCT USED FOR UNKNOWN INDICATION

REACTIONS (12)
  - Pain in extremity [Unknown]
  - Pain in jaw [Unknown]
  - Flushing [Unknown]
  - Dyspnoea [Unknown]
  - Insomnia [Unknown]
  - Asthenia [Unknown]
  - Productive cough [Unknown]
  - Dyspnoea exertional [Not Recovered/Not Resolved]
  - Malaise [Unknown]
  - Product use issue [Unknown]
  - Dysstasia [Unknown]
  - Increased appetite [Unknown]

NARRATIVE: CASE EVENT DATE: 201603
